FAERS Safety Report 11155532 (Version 2)
Quarter: 2015Q2

REPORT INFORMATION
  Report Type: Spontaneous
  Country: US (occurrence: US)
  Receive Date: 20150602
  Receipt Date: 20150604
  Transmission Date: 20150821
  Serious: Yes (Hospitalization)
  Sender: FDA-Public Use
  Company Number: US-ENDO PHARMACEUTICALS INC.-201407036

PATIENT
  Age: 45 Year
  Sex: Male
  Weight: 61.29 kg

DRUGS (1)
  1. TESTIM [Suspect]
     Active Substance: TESTOSTERONE
     Indication: BLOOD TESTOSTERONE DECREASED
     Route: 062
     Dates: start: 200911, end: 201005

REACTIONS (1)
  - Intermittent claudication [Not Recovered/Not Resolved]

NARRATIVE: CASE EVENT DATE: 20100121
